FAERS Safety Report 7898240-2 (Version None)
Quarter: 2011Q4

REPORT INFORMATION
  Report Type: 
  Country: None (occurrence: None)
  Receive Date: 20111107
  Receipt Date: 20111028
  Transmission Date: 20120403
  Serious: Yes (Congenital Anomaly)
  Sender: FDA-Public Use
  Company Number: US-GLAXOSMITHKLINE-A0950719A

PATIENT
  Sex: Female
  Weight: 2.6 kg

DRUGS (6)
  1. PAROXETINE HCL [Suspect]
     Indication: BIPOLAR I DISORDER
     Route: 064
  2. METHADONE HCL [Concomitant]
  3. SEROQUEL [Concomitant]
  4. ALBUTEROL [Concomitant]
  5. MULTI-VITAMINS [Concomitant]
  6. PAXIL CR [Suspect]
     Indication: BIPOLAR I DISORDER
     Route: 048

REACTIONS (3)
  - LEFT ATRIAL DILATATION [None]
  - VENTRICULAR SEPTAL DEFECT [None]
  - DILATATION VENTRICULAR [None]
